FAERS Safety Report 5831360-2 (Version None)
Quarter: 2008Q3

REPORT INFORMATION
  Report Type: 
  Country: None (occurrence: None)
  Receive Date: 20080801
  Receipt Date: 20080519
  Transmission Date: 20090109
  Serious: No
  Sender: FDA-Public Use
  Company Number: US-BOEHRINGER INGELHEIM GMBH, GERMANY-2007-BP-25894BP

PATIENT
  Sex: Male

DRUGS (5)
  1. COMBIVENT [Suspect]
     Indication: CHRONIC OBSTRUCTIVE PULMONARY DISEASE
     Route: 055
     Dates: start: 20040101
  2. LOPRESSOR [Concomitant]
     Indication: HYPERTENSION
  3. ZYPREXA [Concomitant]
     Indication: DEPRESSION
  4. PREVACID [Concomitant]
     Indication: GASTRIC DISORDER
  5. CASANA SUPP [Concomitant]
     Indication: LARGE INTESTINAL ULCER

REACTIONS (2)
  - DRUG INEFFECTIVE [None]
  - WHEEZING [None]
